FAERS Safety Report 7320992-0 (Version None)
Quarter: 2011Q1

REPORT INFORMATION
  Report Type: 
  Country: None (occurrence: None)
  Receive Date: 20110228
  Receipt Date: 20110218
  Transmission Date: 20110831
  Serious: Yes (Life-Threatening)
  Sender: FDA-Public Use
  Company Number: GB-JNJFOC-20110206867

PATIENT
  Age: 83 Year
  Sex: Female

DRUGS (15)
  1. LEVOTHYROXINE SODIUM [Concomitant]
     Route: 065
  2. FUROSEMIDE [Concomitant]
     Route: 065
  3. MACROGOL [Concomitant]
     Route: 065
  4. PRIADEL [Concomitant]
     Route: 065
  5. SENNA [Concomitant]
     Route: 065
  6. TRAMADOL HCL [Suspect]
     Indication: PRODUCT USED FOR UNKNOWN INDICATION
     Route: 048
  7. CELLUVISC [Concomitant]
     Route: 065
  8. IPRATROPIUM BROMIDE [Concomitant]
     Route: 065
  9. DOCUSATE [Concomitant]
     Route: 065
  10. PARACETAMOL [Concomitant]
     Route: 065
  11. ALBUTEROL [Concomitant]
     Route: 065
  12. PHENELZINE SULFATE [Interacting]
     Indication: PRODUCT USED FOR UNKNOWN INDICATION
     Route: 048
  13. ALENDRONIC ACID [Concomitant]
     Route: 065
  14. CALCICHEW D3 [Concomitant]
     Route: 065
  15. PREGABALIN [Concomitant]
     Route: 065

REACTIONS (4)
  - HYPOXIA [None]
  - RESPIRATORY DEPRESSION [None]
  - DEPRESSED LEVEL OF CONSCIOUSNESS [None]
  - DRUG INTERACTION [None]
